FAERS Safety Report 6038879-2 (Version None)
Quarter: 2009Q1

REPORT INFORMATION
  Report Type: 
  Country: None (occurrence: None)
  Receive Date: 20090115
  Receipt Date: 20080918
  Transmission Date: 20090719
  Serious: No
  Sender: FDA-Public Use
  Company Number: US-ABBOTT-08P-163-0476885-00

PATIENT
  Sex: Female
  Weight: 74.456 kg

DRUGS (5)
  1. ADVICOR [Suspect]
     Indication: BLOOD CHOLESTEROL INCREASED
     Dosage: 500/20 MG DAILY AT BEDTIME
     Route: 048
     Dates: start: 20080917
  2. ETACRYNIC ACID [Concomitant]
     Indication: DIURETIC THERAPY
  3. LEVOTHYROXINE SODIUM [Concomitant]
     Indication: DRUG USE FOR UNKNOWN INDICATION
  4. ESTRAT [Concomitant]
     Indication: HORMONE REPLACEMENT THERAPY
  5. LOSARTAN POTASSIUM [Concomitant]
     Indication: HYPERTENSION

REACTIONS (4)
  - FATIGUE [None]
  - LETHARGY [None]
  - PAIN [None]
  - SWELLING [None]
